FAERS Safety Report 5091657-3 (Version None)
Quarter: 2006Q3

REPORT INFORMATION
  Report Type: 
  Country: None (occurrence: None)
  Receive Date: 20060824
  Receipt Date: 20060814
  Transmission Date: 20061208
  Serious: Yes (Other)
  Sender: FDA-Public Use
  Company Number: BEWYE218118JUL06

PATIENT
  Age: 36 Year
  Sex: Female

DRUGS (2)
  1. EFFEXOR XR [Suspect]
     Indication: DEPRESSION
     Dosage: 75 MG 1X PER 1 DAY; ORAL
     Route: 048
     Dates: start: 20060307, end: 20060501
  2. TRAZODONE HYDROCHLORIDE [Suspect]
     Dosage: 1/4 TABLET A DAY; ORAL
     Route: 048
     Dates: start: 20060301

REACTIONS (4)
  - DRUG ADMINISTRATION ERROR [None]
  - ENERGY INCREASED [None]
  - HYPOMANIA [None]
  - MIDDLE INSOMNIA [None]
